FAERS Safety Report 7135750-X (Version None)
Quarter: 2010Q4

REPORT INFORMATION
  Report Type: 
  Country: None (occurrence: None)
  Receive Date: 20101203
  Receipt Date: 20101124
  Transmission Date: 20110411
  Serious: Yes (Hospitalization)
  Sender: FDA-Public Use
  Company Number: JP-PFIZER INC-2010157313

PATIENT
  Age: 72 Year
  Sex: Female

DRUGS (4)
  1. METHOTREXATE SODIUM [Suspect]
     Dosage: 4 MG/WEEK
  2. PREDNISOLONE [Suspect]
     Dosage: 2.5 MG/DAY
  3. INFLIXIMAB [Suspect]
     Dosage: 200 MG PER PORTION
  4. CLARITHROMYCIN [Concomitant]

REACTIONS (1)
  - PNEUMOCYSTIS JIROVECI PNEUMONIA [None]
